FAERS Safety Report 6193872-4 (Version None)
Quarter: 2009Q2

REPORT INFORMATION
  Report Type: 
  Country: None (occurrence: None)
  Receive Date: 20090518
  Receipt Date: 20090507
  Transmission Date: 20091009
  Serious: Yes (Death, Hospitalization)
  Sender: FDA-Public Use
  Company Number: JP-PFIZER INC-2009195568

PATIENT
  Age: 62 Year

DRUGS (12)
  1. *BEVACIZUMAB [Suspect]
     Indication: LARGE INTESTINE CARCINOMA
     Dosage: 5 MG, CYCLIC, EVERY 2 WEEKS
     Route: 042
     Dates: start: 20090217, end: 20090331
  2. IRINOTECAN HCL [Suspect]
     Indication: LARGE INTESTINE CARCINOMA
     Dosage: 180 MG/M2, 1X/DAY
     Dates: start: 20090217, end: 20090331
  3. FLUOROURACIL [Suspect]
     Indication: LARGE INTESTINE CARCINOMA
     Dosage: 400 MG/M2, QD EVERY 2 WEEKS
     Dates: start: 20090217, end: 20090331
  4. FLUOROURACIL [Suspect]
     Dosage: 2400 MG/M2, QD EVERY 2 WEEKS
     Dates: start: 20090217, end: 20090402
  5. CALCIUM LEVOFOLINATE [Suspect]
     Indication: LARGE INTESTINE CARCINOMA
     Dosage: 200 MG/M2, QD EVERY 2 WEEKS
     Dates: start: 20090217, end: 20090331
  6. RABEPRAZOLE SODIUM [Concomitant]
     Route: 048
  7. MAG-LAX [Concomitant]
     Route: 048
  8. LOXOPROFEN SODIUM [Concomitant]
     Route: 048
  9. AZUNOL [Concomitant]
     Route: 061
  10. OXYCODONE HYDROCHLORIDE HYDRATE [Concomitant]
     Route: 048
  11. FENTANYL [Concomitant]
     Route: 061
  12. SENNOSIDE A+B [Concomitant]
     Route: 048

REACTIONS (10)
  - CARDIO-RESPIRATORY ARREST [None]
  - CYANOSIS [None]
  - DUODENAL ULCER HAEMORRHAGE [None]
  - DUODENAL ULCER PERFORATION [None]
  - GASTROINTESTINAL HAEMORRHAGE [None]
  - MYDRIASIS [None]
  - NEUTROPHIL COUNT DECREASED [None]
  - PUPILLARY REFLEX IMPAIRED [None]
  - SHOCK [None]
  - VASCULAR PSEUDOANEURYSM [None]
